FAERS Safety Report 7734832-9 (Version None)
Quarter: 2011Q3

REPORT INFORMATION
  Report Type: 
  Country: None (occurrence: None)
  Receive Date: 20110907
  Receipt Date: 20110221
  Transmission Date: 20111222
  Serious: No
  Sender: FDA-Public Use
  Company Number: US-BAYER-2011-016959

PATIENT
  Sex: Female

DRUGS (1)
  1. MIRENA [Suspect]
     Dosage: 20 MCG/24HR, CONT
     Route: 015
     Dates: start: 20060501

REACTIONS (6)
  - MENORRHAGIA [None]
  - MENSTRUATION IRREGULAR [None]
  - NAUSEA [None]
  - ABDOMINAL DISTENSION [None]
  - MEDICAL DEVICE COMPLICATION [None]
  - DIZZINESS [None]
